FAERS Safety Report 10051111 (Version 2)
Quarter: 2014Q2

REPORT INFORMATION
  Report Type: Spontaneous
  Country: US (occurrence: US)
  Receive Date: 20140401
  Receipt Date: 20140401
  Transmission Date: 20141212
  Serious: No
  Sender: FDA-Public Use
  Company Number: US-ASTRAZENECA-2006UW10246

PATIENT
  Age: 65 Year
  Sex: Female
  Weight: 104.3 kg

DRUGS (5)
  1. NEXIUM [Suspect]
     Indication: GASTROOESOPHAGEAL REFLUX DISEASE
     Route: 048
     Dates: start: 1998, end: 20111231
  2. NEXIUM [Suspect]
     Indication: DYSPEPSIA
     Route: 048
     Dates: start: 1998, end: 20111231
  3. NORVASC [Concomitant]
     Indication: HYPERTENSION
  4. NAPROSYN [Concomitant]
  5. SOMETHING FOR HIGH CHOLESTEROL [Concomitant]

REACTIONS (4)
  - Dizziness [Unknown]
  - Dyspepsia [Not Recovered/Not Resolved]
  - Cough [Unknown]
  - Intentional product misuse [Not Recovered/Not Resolved]
